FAERS Safety Report 6082678-2 (Version None)
Quarter: 2009Q1

REPORT INFORMATION
  Report Type: 
  Country: None (occurrence: None)
  Receive Date: 20090218
  Receipt Date: 20090209
  Transmission Date: 20090719
  Serious: Yes (Other)
  Sender: FDA-Public Use
  Company Number: PHHO2006AR21379

PATIENT
  Sex: Male
  Weight: 70 kg

DRUGS (4)
  1. DIOVAN T30230+ [Suspect]
     Indication: HYPERTENSION
     Dosage: 320 MG, QD
     Route: 048
     Dates: start: 20061106, end: 20061214
  2. HYDROCHLOROTHIAZIDE T08766+ [Suspect]
     Dosage: 25 MG, QD
  3. AMLODIPINE [Suspect]
     Dosage: 10 MG, QD
  4. ALPRAZOLAM [Concomitant]
     Indication: ANXIETY

REACTIONS (1)
  - HYPOKALAEMIA [None]
